FAERS Safety Report 4863973-9 (Version None)
Quarter: 2005Q4

REPORT INFORMATION
  Report Type: 
  Country: None (occurrence: None)
  Receive Date: 20051219
  Receipt Date: 20051212
  Transmission Date: 20060501
  Serious: Yes (Hospitalization)
  Sender: FDA-Public Use
  Company Number: 200514328GDS

PATIENT
  Age: 16 Year
  Sex: Male

DRUGS (1)
  1. CIPROXIN (CIPROFLOXACIN) [Suspect]
     Indication: CYSTITIS
     Dosage: 250 MG, TOTAL DAILY, ORAL
     Route: 048
     Dates: start: 20051205

REACTIONS (2)
  - ANGIONEUROTIC OEDEMA [None]
  - URTICARIA [None]
